FAERS Safety Report 8895108 (Version 1)
Quarter: 2012Q4

REPORT INFORMATION
  Report Type: 
  Country: US (occurrence: US)
  Receive Date: 20121107
  Receipt Date: 20121107
  Transmission Date: 20130627
  Serious: No
  Sender: FDA-Public Use
  Company Number: US-AMGEN-USASP2011056673

PATIENT
  Age: 51 Year
  Sex: Female
  Weight: 90.7 kg

DRUGS (8)
  1. ENBREL [Suspect]
     Indication: PRODUCT USED FOR UNKNOWN INDICATION
     Dosage: 50 mg, qwk
  2. VITAMIN D /00107901/ [Concomitant]
     Dosage: 1000 IU, UNK
  3. IRON [Concomitant]
     Dosage: 18 mg, UNK
  4. METHOTREXATE [Concomitant]
     Dosage: 2.5 mg, UNK
  5. FOLIC ACID [Concomitant]
     Dosage: 1 mg, UNK
  6. HYZAAR [Concomitant]
     Dosage: UNK
  7. ATENOLOL [Concomitant]
     Dosage: 25 mg, UNK
  8. VITAMIN B12                        /00056201/ [Concomitant]
     Dosage: 1000 mug, UNK
     Route: 030

REACTIONS (2)
  - Injection site erythema [Unknown]
  - Injection site pruritus [Unknown]
